FAERS Safety Report 15345754 (Version 1)
Quarter: 2018Q3

REPORT INFORMATION
  Report Type: Report from Study
  Country: ZA (occurrence: ZA)
  Receive Date: 20180904
  Receipt Date: 20180904
  Transmission Date: 20181010
  Serious: Yes (Death, Hospitalization, Other)
  Sender: FDA-Public Use
  Company Number: ZA-AMGEN-ZAFSL2018121517

PATIENT
  Age: 75 Year
  Sex: Male

DRUGS (1)
  1. ARANESP [Suspect]
     Active Substance: DARBEPOETIN ALFA
     Indication: PRODUCT USED FOR UNKNOWN INDICATION
     Dosage: UNK
     Route: 042
     Dates: start: 201306, end: 201805

REACTIONS (3)
  - Unevaluable event [Unknown]
  - Death [Fatal]
  - Haemoglobin abnormal [Unknown]

NARRATIVE: CASE EVENT DATE: 201805
